FAERS Safety Report 8810012 (Version 2)
Quarter: 2013Q2

REPORT INFORMATION
  Report Type: Spontaneous
  Country: DE (occurrence: DE)
  Receive Date: 20120926
  Receipt Date: 20130503
  Transmission Date: 20140414
  Serious: Yes (Hospitalization)
  Sender: FDA-Public Use
  Company Number: DE-TEVA-359109GER

PATIENT
  Age: 82 Year
  Sex: Female
  Weight: 67 kg

DRUGS (10)
  1. METFORMIN 500 MG [Suspect]
     Indication: TYPE 2 DIABETES MELLITUS
     Dosage: 2.5 GRAM DAILY; 2-2-1
     Route: 048
     Dates: start: 20100521
  2. METFORMIN 500 MG [Suspect]
     Dosage: 1000 MILLIGRAM DAILY;
     Route: 048
     Dates: end: 20100521
  3. JANUVIA 100 MG [Concomitant]
     Dosage: 100 MILLIGRAM DAILY; 1-0-0
     Route: 048
     Dates: start: 20100526
  4. ASS 100 [Concomitant]
     Dosage: 100 MILLIGRAM DAILY;
     Route: 048
     Dates: start: 20100512
  5. CARVEDILOL 6,25 MG [Concomitant]
     Dosage: 12.5 MILLIGRAM DAILY;
     Dates: start: 20100512
  6. AMLODIPIN 10 MG [Concomitant]
     Dosage: 15 MILLIGRAM DAILY; 1-0-0.5
     Route: 048
     Dates: start: 20100512
  7. TORASEMID 10 MG [Concomitant]
     Dosage: 15 MILLIGRAM DAILY; 1-0.5-0
     Route: 048
     Dates: start: 20100512
  8. RAMIPRIL  5/12.5 [Concomitant]
     Dosage: 2 DOSAGE FORMS DAILY; 1-0-1
     Route: 048
     Dates: start: 20100512
  9. CLONIDIN 75 MG [Concomitant]
     Dosage: 150 MILLIGRAM DAILY; 1-0-1
     Route: 048
     Dates: start: 20100512
  10. CLONIDIN [Concomitant]
     Dosage: 20 MILLIGRAM DAILY; 1-0-1
     Route: 048

REACTIONS (6)
  - Lactic acidosis [Recovered/Resolved]
  - Renal failure acute [Recovered/Resolved]
  - Hypothermia [None]
  - Hypotension [None]
  - Confusional state [None]
  - Haemodialysis [None]
